FAERS Safety Report 7518919-1 (Version None)
Quarter: 2011Q2

REPORT INFORMATION
  Report Type: 
  Country: None (occurrence: None)
  Receive Date: 20110602
  Receipt Date: 20110513
  Transmission Date: 20111010
  Serious: Yes (Other)
  Sender: FDA-Public Use
  Company Number: US-AMGEN AB-US327994

PATIENT
  Age: 59 Year
  Sex: Male

DRUGS (26)
  1. PREDNISONE [Concomitant]
  2. NEULASTA [Concomitant]
  3. POTASSIUM CHLORIDE [Concomitant]
  4. TRIAMTERENE AND HYDROCHLOROTHIAZIDE [Concomitant]
  5. ARANESP [Concomitant]
  6. NPLATE [Suspect]
     Dosage: 81 A?G, QWK
     Dates: start: 20080924, end: 20081217
  7. VINCRISTINE SULFATE [Suspect]
  8. AZITHROMYCIN [Concomitant]
  9. NPLATE [Suspect]
     Dosage: 81 A?G, QWK
     Dates: start: 20080924, end: 20081217
  10. NPLATE [Suspect]
     Dosage: 81 A?G, QWK
     Dates: start: 20080924, end: 20081217
  11. ONDANSETRON [Concomitant]
  12. VALACYCLOVIR HYDROCHLORIDE [Concomitant]
     Dosage: 1 G, QD
  13. TOLTERODINE TARTRATE [Concomitant]
     Dosage: 4 MG, QD
  14. CISPLATIN [Concomitant]
  15. NPLATE [Suspect]
     Indication: IDIOPATHIC THROMBOCYTOPENIC PURPURA
     Dosage: 81 A?G, QWK
     Dates: start: 20080924, end: 20081217
  16. GUAIFENESIN [Concomitant]
  17. MULTI-VITAMINS [Concomitant]
  18. METFFORMIN HYDROCHLORIDE [Concomitant]
     Dosage: 500 MG, BID
  19. ETOPOSIDE [Concomitant]
  20. ALPRAZOLAM [Concomitant]
     Dosage: 1 MG, TID
  21. FLUTICASONE PROPIONATE [Concomitant]
     Dosage: UNK UNK, UNK
     Route: 045
  22. PROCHLORPERAZINE MALEATE [Concomitant]
     Dosage: 10 MG, PRN
     Route: 048
  23. ATORVASTATIN CALCIUM [Concomitant]
     Dosage: 10 MG, QD
  24. FENOFIBRATE [Concomitant]
     Dosage: 145 MG, QD
  25. RITUXIMAB [Concomitant]
  26. DEXAMETHASONE [Concomitant]

REACTIONS (1)
  - MYELODYSPLASTIC SYNDROME [None]
